FAERS Safety Report 6555170-6 (Version None)
Quarter: 2010Q1

REPORT INFORMATION
  Report Type: 
  Country: None (occurrence: None)
  Receive Date: 20100126
  Receipt Date: 20100126
  Transmission Date: 20100710
  Serious: No
  Sender: FDA-Public Use
  Company Number: None

PATIENT
  Sex: Female
  Weight: 72.5755 kg

DRUGS (1)
  1. DIVAN HCT 310/25MG  320/25 MG (NOVARTIS) [Suspect]
     Indication: HYPERTENSION
     Dosage: 1 DAILY PO
     Route: 048
     Dates: start: 20090801, end: 20091121

REACTIONS (2)
  - DRUG INEFFECTIVE [None]
  - DYSPEPSIA [None]
